FAERS Safety Report 9918299 (Version 1)
Quarter: 2014Q1

REPORT INFORMATION
  Report Type: Report from Study
  Country: US (occurrence: US)
  Receive Date: 20140224
  Receipt Date: 20140224
  Transmission Date: 20141002
  Serious: Yes (Other)
  Sender: FDA-Public Use
  Company Number: US-ROCHE-1336855

PATIENT
  Sex: Male

DRUGS (6)
  1. LUCENTIS [Suspect]
     Indication: AGE-RELATED MACULAR DEGENERATION
     Dosage: LEFT EYE
     Route: 050
  2. AVASTIN [Suspect]
     Indication: PRODUCT USED FOR UNKNOWN INDICATION
     Route: 065
  3. TAMSULOSIN [Concomitant]
     Route: 065
  4. ASPIRIN [Concomitant]
     Route: 065
     Dates: end: 201201
  5. OMEGA 3 [Concomitant]
  6. SIMVASTATIN [Concomitant]
     Route: 065

REACTIONS (10)
  - Macular oedema [Unknown]
  - Cataract [Unknown]
  - Maculopathy [Unknown]
  - Detachment of retinal pigment epithelium [Unknown]
  - Metamorphopsia [Unknown]
  - Vision blurred [Unknown]
  - Vitreous floaters [Unknown]
  - Visual impairment [Unknown]
  - Diplopia [Unknown]
  - Lacrimation increased [Unknown]
